FAERS Safety Report 6347653-9 (Version None)
Quarter: 2009Q3

REPORT INFORMATION
  Report Type: 
  Country: None (occurrence: None)
  Receive Date: 20090910
  Receipt Date: 20090831
  Transmission Date: 20100115
  Serious: Yes (Disabling)
  Sender: FDA-Public Use
  Company Number: PT-MERCK-0909PRT00003

PATIENT
  Age: 67 Year
  Sex: Female

DRUGS (4)
  1. FOSAMAX PLUS D [Suspect]
     Indication: OSTEOPOROSIS
     Route: 048
     Dates: start: 20060101
  2. COZAAR [Concomitant]
     Indication: HYPERTENSION
     Route: 048
  3. TRIMETAZIDINE [Concomitant]
     Indication: TINNITUS
     Route: 065
  4. BROMAZEPAM [Concomitant]
     Indication: ANXIETY
     Route: 065

REACTIONS (6)
  - DIZZINESS [None]
  - FATIGUE [None]
  - INFLAMMATION [None]
  - MUSCLE SPASMS [None]
  - OEDEMA PERIPHERAL [None]
  - PAIN IN EXTREMITY [None]
